FAERS Safety Report 8986323 (Version 5)
Quarter: 2014Q2

REPORT INFORMATION
  Report Type: Report from Study
  Country: JP (occurrence: JP)
  Receive Date: 20121227
  Receipt Date: 20140529
  Transmission Date: 20141212
  Serious: Yes (Other)
  Sender: FDA-Public Use
  Company Number: JP-VERTEX PHARMACEUTICALS INC.-2012-026585

PATIENT
  Age: 55 Year
  Sex: Female

DRUGS (14)
  1. VX-950 (TELAPREVIR) [Suspect]
     Indication: CHRONIC HEPATITIS C
     Dosage: 2250 MG, QD
     Route: 048
     Dates: start: 20120831, end: 20120902
  2. VX-950 (TELAPREVIR) [Suspect]
     Dosage: 1500 MG, QD
     Route: 048
     Dates: start: 20120903, end: 20121105
  3. VX-950 (TELAPREVIR) [Suspect]
     Dosage: 1500 MG, QD
     Route: 048
     Dates: start: 20121108, end: 20121129
  4. RIBAVIRIN [Suspect]
     Indication: CHRONIC HEPATITIS C
     Dosage: 1000 MG, QD
     Route: 048
     Dates: start: 20120831, end: 20121003
  5. RIBAVIRIN [Suspect]
     Dosage: 800 MG, QD
     Route: 048
     Dates: start: 20121004, end: 20121105
  6. RIBAVIRIN [Suspect]
     Dosage: 800 MG, QD
     Route: 048
     Dates: start: 20121108, end: 20130214
  7. PEGINTERFERON ALFA-2B [Suspect]
     Indication: CHRONIC HEPATITIS C
     Dosage: 1.5 ?G/KG, QW
     Route: 058
     Dates: start: 20120831, end: 20120831
  8. PEGINTERFERON ALFA-2B [Suspect]
     Dosage: 80 MCG/BODY/WEEK, ON 9/7, 9/14 AND 9/20
     Route: 058
     Dates: start: 20120907, end: 20120920
  9. PEGINTERFERON ALFA-2B [Suspect]
     Dosage: 40 MCG/BODY/WEEK
     Route: 058
     Dates: start: 20120927, end: 20120927
  10. PEGINTERFERON ALFA-2B [Suspect]
     Dosage: 80 MCG/BODY/WEEK
     Route: 058
     Dates: start: 20121004, end: 20121205
  11. PEGINTERFERON ALFA-2B [Suspect]
     Dosage: 50 MCG/BODY/WEEK
     Route: 058
     Dates: start: 20121206, end: 20130109
  12. PEGINTERFERON ALFA-2B [Suspect]
     Dosage: 60 MCG/BODY/WEEK
     Route: 058
     Dates: start: 20130110, end: 20130207
  13. CRAVIT [Concomitant]
     Dosage: 500 MG, QD
     Route: 048
     Dates: start: 20121004, end: 20121010
  14. URSO [Concomitant]
     Dosage: 300 MG, QD
     Route: 048

REACTIONS (2)
  - Hepatic function abnormal [Not Recovered/Not Resolved]
  - Neutrophil count decreased [Recovering/Resolving]
